FAERS Safety Report 19581821 (Version 2)
Quarter: 2021Q3

REPORT INFORMATION
  Report Type: Spontaneous
  Country: US (occurrence: US)
  Receive Date: 20210719
  Receipt Date: 20210731
  Transmission Date: 20211014
  Serious: No
  Sender: FDA-Public Use
  Company Number: US-EMERGENT BIOSOLUTIONS,-21000105SP

PATIENT

DRUGS (1)
  1. NARCAN [Suspect]
     Active Substance: NALOXONE HYDROCHLORIDE
     Indication: UNINTENTIONAL USE FOR UNAPPROVED INDICATION
     Dosage: UNK
     Dates: start: 20210706

REACTIONS (3)
  - Rhinorrhoea [Recovered/Resolved]
  - Unintentional use for unapproved indication [Recovered/Resolved]
  - Nervousness [Recovered/Resolved]

NARRATIVE: CASE EVENT DATE: 20210706
